FAERS Safety Report 21803245 (Version 3)
Quarter: 2023Q1

REPORT INFORMATION
  Report Type: Spontaneous
  Country: US (occurrence: US)
  Receive Date: 20230101
  Receipt Date: 20230327
  Transmission Date: 20230418
  Serious: Yes (Hospitalization, Other)
  Sender: FDA-Public Use
  Company Number: US-JNJFOC-20221262666

PATIENT
  Age: 56 Year
  Sex: Female
  Weight: 118.04 kg

DRUGS (12)
  1. OPSUMIT [Suspect]
     Active Substance: MACITENTAN
     Indication: Pulmonary arterial hypertension
     Route: 048
  2. TREPROSTINIL SODIUM [Suspect]
     Active Substance: TREPROSTINIL SODIUM
     Indication: Pulmonary arterial hypertension
     Route: 058
     Dates: start: 202212
  3. TREPROSTINIL SODIUM [Suspect]
     Active Substance: TREPROSTINIL SODIUM
     Route: 058
     Dates: start: 2022
  4. TREPROSTINIL SODIUM [Suspect]
     Active Substance: TREPROSTINIL SODIUM
     Route: 058
  5. TADALAFIL [Concomitant]
     Active Substance: TADALAFIL
     Route: 048
  6. ELIQUIS [Concomitant]
     Active Substance: APIXABAN
     Dates: end: 20220512
  7. BUMEX [Concomitant]
     Active Substance: BUMETANIDE
     Dates: end: 20220512
  8. FERROUS SULFATE [Concomitant]
     Active Substance: FERROUS SULFATE
  9. K-DUR [Concomitant]
     Active Substance: POTASSIUM CHLORIDE
     Dates: end: 20220512
  10. ALDACTONE [Concomitant]
     Active Substance: SPIRONOLACTONE
  11. AMBIEN [Concomitant]
     Active Substance: ZOLPIDEM TARTRATE
     Dates: end: 20220512
  12. ZAROXOLYN [Concomitant]
     Active Substance: METOLAZONE

REACTIONS (18)
  - Pneumonia [Unknown]
  - Hypervolaemia [Unknown]
  - Muscle twitching [Unknown]
  - Atrial fibrillation [Unknown]
  - Atrial flutter [Unknown]
  - Hypotension [Unknown]
  - Dyspnoea [Unknown]
  - Joint swelling [Unknown]
  - Abdominal distension [Unknown]
  - Abdominal pain [Unknown]
  - Loss of personal independence in daily activities [Unknown]
  - Pain in jaw [Unknown]
  - Fatigue [Unknown]
  - Pain [Unknown]
  - Pain in extremity [Unknown]
  - Diarrhoea [Unknown]
  - Dizziness [Unknown]
  - Arthralgia [Unknown]

NARRATIVE: CASE EVENT DATE: 20230114
